FAERS Safety Report 8972210 (Version 1)
Quarter: 2012Q4

REPORT INFORMATION
  Report Type: 
  Country: US (occurrence: US)
  Receive Date: 20121218
  Receipt Date: 20121218
  Transmission Date: 20130627
  Serious: No
  Sender: FDA-Public Use
  Company Number: US-PFIZER INC-2012308090

PATIENT

DRUGS (2)
  1. VISTARIL [Suspect]
     Dosage: UNK
  2. NITROSTAT [Suspect]
     Dosage: UNK

REACTIONS (1)
  - Chest pain [Unknown]
